FAERS Safety Report 8975734 (Version 1)
Quarter: 2012Q4

REPORT INFORMATION
  Report Type: 
  Country: BR (occurrence: BR)
  Receive Date: 20121219
  Receipt Date: 20121219
  Transmission Date: 20130627
  Serious: Yes (Life-Threatening, Other)
  Sender: FDA-Public Use
  Company Number: PHHY2012BR116886

PATIENT
  Sex: Female

DRUGS (1)
  1. ONBREZ [Suspect]
     Indication: ASTHMA
     Dosage: 150 ug, QD

REACTIONS (9)
  - Cardiac arrest [Unknown]
  - Tricuspid valve disease [Unknown]
  - Musculoskeletal chest pain [Unknown]
  - Local swelling [Not Recovered/Not Resolved]
  - Neck pain [Unknown]
  - Swelling [Not Recovered/Not Resolved]
  - Malaise [Unknown]
  - Off label use [Unknown]
  - Cough [Recovering/Resolving]
